FAERS Safety Report 9243132 (Version 2)
Quarter: 2013Q3

REPORT INFORMATION
  Report Type: Spontaneous
  Country: US (occurrence: US)
  Receive Date: 20130419
  Receipt Date: 20130923
  Transmission Date: 20140515
  Serious: Yes (Death, Hospitalization)
  Sender: FDA-Public Use
  Company Number: US-B.I. PHARMACEUTICALS,INC./RIDGEFIELD-2013-BI-10586BP

PATIENT
  Age: 80 Year
  Sex: Female
  Weight: 87.09 kg

DRUGS (21)
  1. PRADAXA [Suspect]
     Indication: ATRIAL FIBRILLATION
     Dosage: 300 MG
     Route: 048
     Dates: start: 20111219, end: 20120104
  2. IPRATROPIUM-ALBUTEROL [Concomitant]
     Indication: DYSPNOEA
     Route: 055
  3. METOPROLOL TARTRATE [Concomitant]
     Indication: VENTRICULAR ARRHYTHMIA
     Dosage: 100 MG
     Route: 048
  4. METOPROLOL TARTRATE [Concomitant]
     Indication: HYPERTENSION
  5. FOLIC AICD [Concomitant]
     Indication: SUPPLEMENTATION THERAPY
     Dosage: 0.5 MG
     Route: 048
  6. AMLODIPINE BESYLATE [Concomitant]
     Indication: HYPERTENSION
     Route: 048
  7. DIFLUPREDNATE [Concomitant]
     Indication: RETINAL DETACHMENT
     Route: 031
  8. BESIFLOXACIN HCL [Concomitant]
     Indication: RETINAL DETACHMENT
     Route: 031
  9. SERTRALINE HCL [Concomitant]
     Indication: DEPRESSION
     Dosage: 25 MG
     Route: 048
  10. MEMANTINE HCL [Concomitant]
     Dosage: 20 MG
     Route: 048
  11. CLOPIDOGREL BISULFATE [Concomitant]
     Dosage: 75 MG
     Route: 048
  12. DOCUSATE SODIUM\SENNOSIDES [Concomitant]
     Indication: CONSTIPATION
     Route: 048
  13. HYDROCODONE-ACETAMINOPHEN [Concomitant]
     Indication: PAIN
     Route: 048
  14. DONEPEZIL HCL [Concomitant]
     Indication: DEMENTIA
     Dosage: 10 MG
     Route: 048
  15. ASPIRIN [Concomitant]
     Indication: ATRIAL FIBRILLATION
     Dosage: 81 MG
     Route: 048
  16. AVAPRO [Concomitant]
     Indication: CORONARY ARTERY DISEASE
     Dosage: 150 MG
     Route: 048
  17. GLYBURIDE [Concomitant]
     Route: 048
  18. SIMVASTATIN [Concomitant]
     Indication: CORONARY ARTERY DISEASE
     Dosage: 40 MG
     Route: 048
  19. FUROSEMIDE [Concomitant]
     Indication: HYPERTENSION
     Dosage: 40 MG
     Route: 048
  20. ALLOPURINOL [Concomitant]
     Dosage: 200 MG
     Route: 048
  21. COLESEVELAM HCL [Concomitant]
     Indication: CARDIAC DISORDER
     Dosage: 1250 MG
     Route: 048

REACTIONS (6)
  - Coronary artery disease [Fatal]
  - Gastrointestinal haemorrhage [Unknown]
  - Blood glucose decreased [Unknown]
  - Loss of consciousness [Unknown]
  - Contusion [Unknown]
  - Rectal haemorrhage [Recovered/Resolved]
